FAERS Safety Report 7991000-3 (Version None)
Quarter: 2011Q4

REPORT INFORMATION
  Report Type: 
  Country: None (occurrence: None)
  Receive Date: 20111219
  Receipt Date: 20111208
  Transmission Date: 20120403
  Serious: Yes (Other)
  Sender: FDA-Public Use
  Company Number: JP-SANOFI-AVENTIS-2011SA081686

PATIENT
  Age: 79 Year
  Sex: Male

DRUGS (5)
  1. XELODA [Concomitant]
     Indication: COLON CANCER
     Route: 048
     Dates: start: 20101201
  2. LOPERAMIDE HCL [Concomitant]
     Indication: DIARRHOEA
     Route: 048
  3. AVASTIN [Concomitant]
     Indication: COLON CANCER
     Route: 041
     Dates: start: 20101201
  4. OXYCONTIN [Concomitant]
     Indication: MEGACOLON
     Route: 048
  5. OXALIPLATIN [Suspect]
     Indication: COLON CANCER
     Route: 041
     Dates: start: 20101201

REACTIONS (1)
  - COLITIS ISCHAEMIC [None]
